FAERS Safety Report 5464232-6 (Version None)
Quarter: 2007Q3

REPORT INFORMATION
  Report Type: 
  Country: None (occurrence: None)
  Receive Date: 20070921
  Receipt Date: 20070914
  Transmission Date: 20080115
  Serious: Yes (Disabling)
  Sender: FDA-Public Use
  Company Number: JP-BRISTOL-MYERS SQUIBB COMPANY-13914486

PATIENT
  Age: 5 Year
  Sex: Female

DRUGS (4)
  1. ENDOXAN [Suspect]
     Indication: RHABDOMYOSARCOMA
     Dates: start: 20021001
  2. VINCRISTINE SULFATE [Suspect]
     Indication: RHABDOMYOSARCOMA
     Dates: start: 20021001
  3. ACTINOMYCIN D [Suspect]
     Indication: RHABDOMYOSARCOMA
     Dates: start: 20021001
  4. RADIOTHERAPY [Suspect]
     Indication: RHABDOMYOSARCOMA
     Dosage: DOSAGE GIVEN AS 45 GRAY.
     Dates: start: 20030101

REACTIONS (4)
  - HYPOAESTHESIA FACIAL [None]
  - MALOCCLUSION [None]
  - STRABISMUS [None]
  - TOOTH HYPOPLASIA [None]
